FAERS Safety Report 12452682 (Version 2)
Quarter: 2016Q2

REPORT INFORMATION
  Report Type: Spontaneous
  Country: US (occurrence: US)
  Receive Date: 20160609
  Receipt Date: 20160629
  Transmission Date: 20160815
  Serious: Yes (Death, Other)
  Sender: FDA-Public Use
  Company Number: US-BRISTOL-MYERS SQUIBB COMPANY-BMS-2016-043704

PATIENT
  Sex: Male

DRUGS (2)
  1. OPDIVO [Suspect]
     Active Substance: NIVOLUMAB
     Indication: OESOPHAGEAL CARCINOMA
     Dosage: 280 MG, Q2WK
     Route: 065
     Dates: start: 20160322, end: 20160322
  2. OPDIVO [Suspect]
     Active Substance: NIVOLUMAB
     Dosage: 280 MG, Q2WK
     Route: 065
     Dates: start: 20160405, end: 20160405

REACTIONS (2)
  - Off label use [Unknown]
  - Malignant neoplasm progression [Fatal]
